FAERS Safety Report 20390275 (Version 1)
Quarter: 2022Q1

REPORT INFORMATION
  Report Type: Spontaneous
  Country: US (occurrence: None)
  Receive Date: 20220127
  Receipt Date: 20220127
  Transmission Date: 20220423
  Serious: Yes (Other)
  Sender: FDA-Public Use
  Company Number: None

PATIENT
  Sex: Female

DRUGS (1)
  1. CLONAZEPAM [Suspect]
     Active Substance: CLONAZEPAM
     Indication: Temporal lobe epilepsy
     Dosage: FREQUENCY : DAILY;?
     Route: 048

REACTIONS (3)
  - Seizure [None]
  - Drug ineffective [None]
  - Suspected product quality issue [None]
